FAERS Safety Report 20718992 (Version 3)
Quarter: 2022Q2

REPORT INFORMATION
  Report Type: Other
  Country: JP (occurrence: JP)
  Receive Date: 20220418
  Receipt Date: 20220531
  Transmission Date: 20220721
  Serious: Yes (Other)
  Sender: FDA-Public Use
  Company Number: JP-CHUGAI-2022012206

PATIENT
  Age: 80 Year
  Sex: Male

DRUGS (3)
  1. ATEZOLIZUMAB [Suspect]
     Active Substance: ATEZOLIZUMAB
     Indication: Hepatocellular carcinoma
     Dosage: 1200 MILLIGRAM
     Route: 041
     Dates: start: 20210803, end: 20211026
  2. BEVACIZUMAB [Suspect]
     Active Substance: BEVACIZUMAB
     Indication: Hepatocellular carcinoma
     Dosage: UNK
     Route: 041
     Dates: start: 20210803, end: 20210803
  3. BEVACIZUMAB [Suspect]
     Active Substance: BEVACIZUMAB
     Dosage: UNK
     Route: 041
     Dates: end: 20211026

REACTIONS (10)
  - Aspartate aminotransferase increased [Recovered/Resolved]
  - Fatigue [Unknown]
  - Anaemia [Recovered/Resolved]
  - Rash maculo-papular [Recovered/Resolved]
  - Pain [Unknown]
  - Hypertension [Recovered/Resolved]
  - Nausea [Recovered/Resolved]
  - Decreased appetite [Unknown]
  - Anaemia [Recovered/Resolved]
  - Nausea [Recovered/Resolved]

NARRATIVE: CASE EVENT DATE: 20210806
